FAERS Safety Report 20856043 (Version 1)
Quarter: 2022Q2

REPORT INFORMATION
  Report Type: Spontaneous
  Country: US (occurrence: None)
  Receive Date: 20220520
  Receipt Date: 20220520
  Transmission Date: 20220721
  Serious: Yes (Hospitalization)
  Sender: FDA-Public Use
  Company Number: 2022A186467

PATIENT

DRUGS (1)
  1. SEROQUEL [Suspect]
     Active Substance: QUETIAPINE FUMARATE
     Dosage: 200-300MG
     Route: 048
     Dates: end: 202204

REACTIONS (8)
  - Atrial fibrillation [Recovering/Resolving]
  - Anxiety [Unknown]
  - Tachyphrenia [Unknown]
  - Sleep disorder [Unknown]
  - Agitation [Unknown]
  - Insomnia [Unknown]
  - Tremor [Unknown]
  - Heart rate increased [Unknown]

NARRATIVE: CASE EVENT DATE: 20220401
